FAERS Safety Report 15344328 (Version 1)
Quarter: 2018Q4

REPORT INFORMATION
  Report Type: Report from Study
  Country: US (occurrence: US)
  Receive Date: 20180903
  Receipt Date: 20180903
  Transmission Date: 20190204
  Serious: No
  Sender: FDA-Public Use
  Company Number: US-SA-2018SA233320

PATIENT
  Age: 65 Year
  Sex: Male

DRUGS (43)
  1. LANTUS [Suspect]
     Active Substance: INSULIN GLARGINE
     Dosage: 80 U, QD
     Route: 058
     Dates: start: 20180726, end: 20180729
  2. LANTUS [Suspect]
     Active Substance: INSULIN GLARGINE
     Dosage: 86 U, QD
     Route: 058
     Dates: start: 20180803, end: 20180805
  3. LOPERAMIDE [Concomitant]
     Active Substance: LOPERAMIDE
     Indication: DIARRHOEA
     Dosage: 10 MG, QD
     Route: 048
     Dates: start: 201801
  4. LORATADINE. [Concomitant]
     Active Substance: LORATADINE
     Indication: SEASONAL ALLERGY
     Dosage: 10 MG, QD
     Route: 048
     Dates: start: 201801, end: 20180818
  5. IBUPROFEN. [Concomitant]
     Active Substance: IBUPROFEN
     Indication: HEADACHE
     Dosage: 2 DF, QD
     Route: 048
     Dates: start: 2018
  6. BLINDED PLACEBO RUN IN [Suspect]
     Active Substance: INVESTIGATIONAL PRODUCT
     Indication: TYPE 2 DIABETES MELLITUS
     Dosage: UNK, UNK
     Route: 048
  7. BLINDED SOTAGLIFLOZIN [Suspect]
     Active Substance: SOTAGLIFLOZIN
     Indication: TYPE 2 DIABETES MELLITUS
     Dosage: UNK, UNK
     Route: 048
  8. LANTUS [Suspect]
     Active Substance: INSULIN GLARGINE
     Indication: TYPE 2 DIABETES MELLITUS
     Dosage: 100 U, QD
     Route: 058
     Dates: start: 20180815
  9. MELOXICAM. [Concomitant]
     Active Substance: MELOXICAM
     Indication: ARTHRITIS
     Dosage: 7.5 MG, QD
     Route: 048
     Dates: start: 2016, end: 20180807
  10. BLINDED SOTAGLIFLOZIN [Suspect]
     Active Substance: SOTAGLIFLOZIN
     Indication: TYPE 2 DIABETES MELLITUS
     Dosage: UNK, UNK
     Route: 048
  11. LANTUS [Suspect]
     Active Substance: INSULIN GLARGINE
     Dosage: 40 U, QD
     Route: 058
     Dates: start: 20180725, end: 20180725
  12. LANTUS [Suspect]
     Active Substance: INSULIN GLARGINE
     Dosage: 92 U, QD
     Route: 058
     Dates: start: 20180806, end: 20180808
  13. PIOGLITAZONE. [Suspect]
     Active Substance: PIOGLITAZONE
     Indication: TYPE 2 DIABETES MELLITUS
     Dosage: 45 MG, QD
     Route: 048
     Dates: start: 2013
  14. LEVOTHYROXINE. [Concomitant]
     Active Substance: LEVOTHYROXINE
     Dosage: 0.13 MG, QD
     Route: 048
     Dates: start: 2016, end: 20180808
  15. NAPROXEN. [Concomitant]
     Active Substance: NAPROXEN
     Indication: MIGRAINE
  16. BLINDED GLIPIZIDE [Suspect]
     Active Substance: GLIPIZIDE
     Indication: TYPE 2 DIABETES MELLITUS
     Dosage: UNK, UNK
     Route: 048
  17. SOLOSTAR [Suspect]
     Active Substance: DEVICE
     Indication: TYPE 2 DIABETES MELLITUS
     Dosage: UNK, UNK
     Route: 048
  18. LEVEMIR [Suspect]
     Active Substance: INSULIN DETEMIR
     Dosage: 76 IU, QD
     Route: 058
     Dates: start: 20180715, end: 20180715
  19. LOSARTAN. [Concomitant]
     Active Substance: LOSARTAN
     Indication: HYPERTENSION
     Dosage: 100 MG, QD
     Route: 048
     Dates: start: 2013
  20. BLINDED METFORMIN HYDROCHLORIDE [Suspect]
     Active Substance: METFORMIN HYDROCHLORIDE
     Indication: TYPE 2 DIABETES MELLITUS
     Dosage: UNK, UNK
     Route: 048
  21. LANTUS [Suspect]
     Active Substance: INSULIN GLARGINE
     Dosage: 96 U, QD
     Route: 058
     Dates: start: 20180809, end: 20180812
  22. LEVEMIR [Suspect]
     Active Substance: INSULIN DETEMIR
     Dosage: 72 IU, QD
     Route: 058
     Dates: start: 201801, end: 20180713
  23. ACETAMINOPHEN. [Concomitant]
     Active Substance: ACETAMINOPHEN
     Indication: MIGRAINE
     Dosage: 650 MG, QD
     Route: 048
     Dates: start: 2017
  24. BLINDED NO STUDY DRUG GIVEN [Suspect]
     Active Substance: INVESTIGATIONAL PRODUCT
     Indication: TYPE 2 DIABETES MELLITUS
     Dosage: UNK, UNK
     Route: 048
  25. LEVOTHYROXINE. [Concomitant]
     Active Substance: LEVOTHYROXINE
     Indication: HYPOTHYROIDISM
     Dosage: 0.25 MG, QD
     Route: 048
     Dates: start: 20180809
  26. NAPROXEN. [Concomitant]
     Active Substance: NAPROXEN
     Indication: OSTEOARTHRITIS
     Dosage: 500 MG, QD
     Route: 048
     Dates: start: 2017
  27. CETRIZINE [Concomitant]
     Active Substance: CETIRIZINE HYDROCHLORIDE
     Indication: SEASONAL ALLERGY
     Dosage: UNK
     Dates: start: 20180819
  28. BLINDED INSULIN GLARGINE [Suspect]
     Active Substance: INSULIN GLARGINE
     Indication: TYPE 2 DIABETES MELLITUS
     Dosage: UNK, UNK
     Route: 048
  29. LANTUS [Suspect]
     Active Substance: INSULIN GLARGINE
     Dosage: 84 U, QD
     Route: 058
     Dates: start: 20180801, end: 20180802
  30. LANTUS [Suspect]
     Active Substance: INSULIN GLARGINE
     Dosage: 96 U, QD
     Route: 058
     Dates: start: 20180814, end: 20180814
  31. LEVEMIR [Suspect]
     Active Substance: INSULIN DETEMIR
     Indication: TYPE 2 DIABETES MELLITUS
     Dosage: UNK
     Route: 058
  32. BLINDED METFORMIN HYDROCHLORIDE [Suspect]
     Active Substance: METFORMIN HYDROCHLORIDE
     Indication: TYPE 2 DIABETES MELLITUS
     Dosage: UNK, UNK
     Route: 048
  33. BLINDED PLACEBO [Suspect]
     Active Substance: INVESTIGATIONAL PRODUCT
     Indication: TYPE 2 DIABETES MELLITUS
     Dosage: UNK, UNK
     Route: 048
  34. LANTUS [Suspect]
     Active Substance: INSULIN GLARGINE
     Dosage: 80 U, QD
     Route: 058
     Dates: start: 20180731, end: 20180731
  35. LANTUS [Suspect]
     Active Substance: INSULIN GLARGINE
     Dosage: 48 U, QD
     Route: 058
     Dates: start: 20180813, end: 20180813
  36. LEVEMIR [Suspect]
     Active Substance: INSULIN DETEMIR
     Dosage: 74 IU, QD
     Route: 058
     Dates: start: 20180714, end: 20180714
  37. NAPROXEN. [Concomitant]
     Active Substance: NAPROXEN
     Indication: ARTHRITIS
     Dosage: 500 MG, QD
     Route: 048
     Dates: start: 201801
  38. NAPROXEN. [Concomitant]
     Active Substance: NAPROXEN
     Indication: HEADACHE
     Dosage: 500 MG, QD
     Route: 048
     Dates: start: 2013
  39. ATORVASTATIN [Concomitant]
     Active Substance: ATORVASTATIN
     Indication: HYPERLIPIDAEMIA
     Dosage: 40 MG, QD
     Route: 048
     Dates: start: 2017
  40. CHOLECALCIFEROL [Concomitant]
     Active Substance: CHOLECALCIFEROL
     Indication: VITAMIN D DEFICIENCY
     Dosage: 50000 IU, QD
     Route: 048
     Dates: start: 201804
  41. IBUPROFEN. [Concomitant]
     Active Substance: IBUPROFEN
     Indication: MIGRAINE
  42. LATANOPROST. [Concomitant]
     Active Substance: LATANOPROST
     Indication: GLAUCOMA
     Dosage: UNK UNK, UNK
     Route: 031
     Dates: start: 2014
  43. ACETAMINOPHEN. [Concomitant]
     Active Substance: ACETAMINOPHEN
     Indication: HEADACHE
     Dosage: 650 MG, QD
     Route: 048
     Dates: start: 2018

REACTIONS (1)
  - Alanine aminotransferase increased [Not Recovered/Not Resolved]

NARRATIVE: CASE EVENT DATE: 20180815
